FAERS Safety Report 21926587 (Version 1)
Quarter: 2023Q1

REPORT INFORMATION
  Report Type: Spontaneous
  Country: US (occurrence: None)
  Receive Date: 20230127
  Receipt Date: 20230127
  Transmission Date: 20230418
  Serious: No
  Sender: FDA-Public Use
  Company Number: None

PATIENT
  Sex: 0

DRUGS (2)
  1. SYSTANE ULTRA [Suspect]
     Active Substance: POLYETHYLENE GLYCOL 400\PROPYLENE GLYCOL
  2. MURO 128 [Suspect]
     Active Substance: SODIUM CHLORIDE

REACTIONS (3)
  - Dry eye [None]
  - Eye irritation [None]
  - Eyelid disorder [None]
